FAERS Safety Report 19649612 (Version 2)
Quarter: 2021Q3

REPORT INFORMATION
  Report Type: Spontaneous
  Country: US (occurrence: US)
  Receive Date: 20210803
  Receipt Date: 20210921
  Transmission Date: 20211014
  Serious: Yes (Hospitalization, Other)
  Sender: FDA-Public Use
  Company Number: US-B.I. PHARMACEUTICALS,INC./RIDGEFIELD-2021-BI-118787

PATIENT
  Sex: Female

DRUGS (1)
  1. COMBIVENT [Suspect]
     Active Substance: ALBUTEROL SULFATE\IPRATROPIUM BROMIDE
     Indication: CHRONIC OBSTRUCTIVE PULMONARY DISEASE
     Dosage: FORM OF ADMIN?INHALATION SPRAY?2 PUFFS THREE TIMES DAILY

REACTIONS (5)
  - Myocardial infarction [Recovered/Resolved]
  - Hysterectomy [Unknown]
  - Thrombosis [Recovered/Resolved]
  - Intentional overdose [Unknown]
  - Device malfunction [Unknown]

NARRATIVE: CASE EVENT DATE: 2012
